FAERS Safety Report 8584804-X (Version None)
Quarter: 2012Q3

REPORT INFORMATION
  Report Type: 
  Country: None (occurrence: None)
  Receive Date: 20120810
  Receipt Date: 20120801
  Transmission Date: 20120928
  Serious: Yes (Other)
  Sender: FDA-Public Use
  Company Number: US-JNJFOC-20120802432

PATIENT
  Age: 23 Year
  Sex: Male

DRUGS (4)
  1. PERCOCET [Concomitant]
     Indication: PAIN
     Route: 065
  2. REMICADE [Suspect]
     Dosage: LAST INFUSION
     Route: 042
     Dates: start: 20120622
  3. REMICADE [Suspect]
     Indication: CROHN'S DISEASE
     Route: 042
     Dates: start: 20120404
  4. PENTASA [Concomitant]
     Indication: PRODUCT USED FOR UNKNOWN INDICATION
     Route: 065

REACTIONS (3)
  - LOSS OF CONSCIOUSNESS [None]
  - CONVULSION [None]
  - HEADACHE [None]
